FAERS Safety Report 9880246 (Version 1)
Quarter: 2014Q1

REPORT INFORMATION
  Report Type: Spontaneous
  Country: US (occurrence: US)
  Receive Date: 20140207
  Receipt Date: 20140207
  Transmission Date: 20141002
  Serious: No
  Sender: FDA-Public Use
  Company Number: US-BIOGENIDEC-2014BI009614

PATIENT
  Age: 69 Year
  Sex: Female

DRUGS (16)
  1. TECFIDERA [Suspect]
     Indication: MULTIPLE SCLEROSIS
     Route: 048
  2. TECFIDERA [Suspect]
     Indication: MULTIPLE SCLEROSIS
     Route: 048
     Dates: start: 20140114
  3. SYNTHROID [Concomitant]
  4. CALCIUM [Concomitant]
  5. VITAMEN E [Concomitant]
  6. CARAFATE SUSP [Concomitant]
  7. MUCINEX [Concomitant]
  8. ASA [Concomitant]
  9. VITAMIN D [Concomitant]
  10. FLUTICASONE [Concomitant]
     Route: 045
  11. CLARITIN [Concomitant]
  12. VALIUM [Concomitant]
  13. GABAPENTIN [Concomitant]
  14. MICARDIS HCT [Concomitant]
  15. REFRESH [Concomitant]
     Route: 047
  16. AMBIEN [Concomitant]

REACTIONS (5)
  - Sinus congestion [Not Recovered/Not Resolved]
  - Drug intolerance [Recovered/Resolved]
  - Intentional underdose [Not Recovered/Not Resolved]
  - Nausea [Recovered/Resolved]
  - Vomiting [Recovered/Resolved]
